FAERS Safety Report 10157845 (Version 1)
Quarter: 2014Q2

REPORT INFORMATION
  Report Type: Spontaneous
  Country: US (occurrence: US)
  Receive Date: 20140507
  Receipt Date: 20140507
  Transmission Date: 20141212
  Serious: No
  Sender: FDA-Public Use
  Company Number: US-009507513-2012SP011964

PATIENT
  Age: 22 Month
  Sex: Female

DRUGS (4)
  1. CLARITIN ORAL SOLUTION [Suspect]
     Indication: HYPERSENSITIVITY
     Dosage: UNK UNK, QD
     Route: 048
  2. CLARITIN ORAL SOLUTION [Suspect]
     Indication: NASOPHARYNGITIS
     Dosage: 5 MG, ONCE
     Route: 048
     Dates: start: 20120226
  3. CLARITIN ORAL SOLUTION [Suspect]
     Dosage: 5 MG, ONCE
     Route: 048
     Dates: start: 20120226
  4. MOTRIN [Concomitant]
     Indication: PRODUCT USED FOR UNKNOWN INDICATION
     Dosage: UNK UNK, UNKNOWN

REACTIONS (1)
  - Overdose [Not Recovered/Not Resolved]
